FAERS Safety Report 21770485 (Version 1)
Quarter: 2022Q4

REPORT INFORMATION
  Report Type: Spontaneous
  Country: US (occurrence: US)
  Receive Date: 20221223
  Receipt Date: 20221223
  Transmission Date: 20230113
  Serious: Yes (Life-Threatening, Other)
  Sender: FDA-Public Use
  Company Number: US-BIOGEN-2022BI01176813

PATIENT
  Sex: Female

DRUGS (1)
  1. TYSABRI [Suspect]
     Active Substance: NATALIZUMAB
     Indication: Product used for unknown indication
     Route: 050

REACTIONS (6)
  - Near death experience [Unknown]
  - Haemorrhage [Unknown]
  - Colon injury [Unknown]
  - Nephropathy toxic [Unknown]
  - Pancreatic injury [Unknown]
  - Myocardial injury [Unknown]
